FAERS Safety Report 17471082 (Version 1)
Quarter: 2020Q1

REPORT INFORMATION
  Report Type: Report from Study
  Country: US (occurrence: US)
  Receive Date: 20200228
  Receipt Date: 20200228
  Transmission Date: 20200409
  Serious: Yes (Other)
  Sender: FDA-Public Use
  Company Number: US-ROCHE-2552998

PATIENT
  Sex: Female

DRUGS (1)
  1. OCREVUS [Suspect]
     Active Substance: OCRELIZUMAB
     Indication: MULTIPLE SCLEROSIS
     Dosage: ONGOING : YES?DATES OF TREATMENT : 7/NOV/2018, 21/NOV/2018, 31/MAY/2019
     Route: 065
     Dates: start: 20181107

REACTIONS (1)
  - Urinary tract infection [Recovered/Resolved]
